FAERS Safety Report 24008604 (Version 1)
Quarter: 2024Q2

REPORT INFORMATION
  Report Type: Report from Study
  Country: CO (occurrence: None)
  Receive Date: 20240625
  Receipt Date: 20240625
  Transmission Date: 20240715
  Serious: Yes (Hospitalization, Other)
  Sender: FDA-Public Use
  Company Number: 2024A141350

PATIENT
  Age: 22408 Day
  Sex: Female

DRUGS (1)
  1. LOKELMA [Suspect]
     Active Substance: SODIUM ZIRCONIUM CYCLOSILICATE
     Indication: Hyperkalaemia
     Route: 048
     Dates: start: 20231202

REACTIONS (3)
  - Abdominal abscess [Recovering/Resolving]
  - Abscess soft tissue [Unknown]
  - Abscess limb [Recovering/Resolving]

NARRATIVE: CASE EVENT DATE: 20240615
